FAERS Safety Report 8162974-5 (Version None)
Quarter: 2012Q1

REPORT INFORMATION
  Report Type: 
  Country: None (occurrence: None)
  Receive Date: 20120103
  Receipt Date: 20110929
  Transmission Date: 20120608
  Serious: Yes (Other)
  Sender: FDA-Public Use
  Company Number: AE-2011-001521

PATIENT
  Age: 46 Year
  Sex: Male

DRUGS (9)
  1. INCIVEK [Suspect]
     Dates: start: 20110714
  2. LEVOTHYROXINE SODIUM [Concomitant]
  3. RIBAVIRIN [Concomitant]
  4. LITHIUM CARBONATE [Concomitant]
  5. OMEPRAZOLE [Concomitant]
  6. FLUOXETINE [Concomitant]
  7. PEGASYS [Concomitant]
  8. RITALIN [Concomitant]
  9. SEROQUEL [Concomitant]

REACTIONS (1)
  - ANAEMIA [None]
